FAERS Safety Report 19501488 (Version 4)
Quarter: 2021Q4

REPORT INFORMATION
  Report Type: Spontaneous
  Country: US (occurrence: US)
  Receive Date: 20210707
  Receipt Date: 20211228
  Transmission Date: 20220303
  Serious: No
  Sender: FDA-Public Use
  Company Number: US-GLAXOSMITHKLINE-US2021AMR147372

PATIENT
  Age: 36 Year
  Sex: Female

DRUGS (5)
  1. BENLYSTA [Suspect]
     Active Substance: BELIMUMAB
     Indication: Migraine without aura
     Dosage: 200 MG,Z EVERY 7 DAYS
     Dates: start: 201909
  2. BENLYSTA [Suspect]
     Active Substance: BELIMUMAB
     Indication: Pain
  3. BENLYSTA [Suspect]
     Active Substance: BELIMUMAB
     Indication: Migraine
  4. BENLYSTA [Suspect]
     Active Substance: BELIMUMAB
     Indication: Systemic lupus erythematosus
     Dosage: 200 MG, WE
     Route: 058
  5. BENLYSTA [Suspect]
     Active Substance: BELIMUMAB

REACTIONS (7)
  - Pain [Recovered/Resolved]
  - Injection site pain [Recovered/Resolved]
  - Wrong technique in device usage process [Unknown]
  - Circumstance or information capable of leading to medication error [Unknown]
  - Product use in unapproved indication [Unknown]
  - Incorrect dose administered [Unknown]
  - Product dose omission issue [Unknown]

NARRATIVE: CASE EVENT DATE: 20211012
